FAERS Safety Report 8759180 (Version 2)
Quarter: 2012Q4

REPORT INFORMATION
  Report Type: 
  Country: US (occurrence: US)
  Receive Date: 20120829
  Receipt Date: 20121107
  Transmission Date: 20130627
  Serious: No
  Sender: FDA-Public Use
  Company Number: US-009507513-1208USA010244

PATIENT

DRUGS (6)
  1. PEGINTRON [Suspect]
     Indication: HEPATITIS C
     Dosage: 150 Microgram, qw
     Dates: start: 20120604, end: 201208
  2. PEGINTRON [Suspect]
     Dosage: 120 Microgram, qw
     Dates: start: 201208
  3. INCIVEK [Concomitant]
  4. RIBASPHERE [Concomitant]
  5. ASCORBIC ACID [Concomitant]
  6. VITAMIN D (UNSPECIFIED) [Concomitant]

REACTIONS (2)
  - Haemorrhoidal haemorrhage [Not Recovered/Not Resolved]
  - Rash generalised [Not Recovered/Not Resolved]
